FAERS Safety Report 4356029-5 (Version None)
Quarter: 2004Q2

REPORT INFORMATION
  Report Type: 
  Country: None (occurrence: None)
  Receive Date: 20040511
  Receipt Date: 20040414
  Transmission Date: 20050107
  Serious: Yes (Hospitalization)
  Sender: FDA-Public Use
  Company Number: US-ROCHE-364637

PATIENT
  Age: 53 Year
  Sex: Male

DRUGS (6)
  1. PEGASYS [Suspect]
     Indication: HEPATITIS C VIRUS
     Route: 058
     Dates: start: 20030701, end: 20040415
  2. COPEGUS [Suspect]
     Indication: HEPATITIS C VIRUS
     Route: 048
     Dates: start: 20030701, end: 20031215
  3. ZESTRIL [Concomitant]
     Indication: CARDIOMYOPATHY
     Route: 048
     Dates: start: 19970615
  4. LASIX [Concomitant]
     Indication: CARDIOMYOPATHY
     Route: 048
     Dates: start: 19970615
  5. COREG [Concomitant]
     Route: 048
     Dates: start: 19970615
  6. SPIRONOLACTONE [Concomitant]
     Indication: CARDIOMYOPATHY
     Route: 048
     Dates: start: 19970615

REACTIONS (16)
  - ALOPECIA [None]
  - ANAEMIA [None]
  - ARTHRALGIA [None]
  - CHILLS [None]
  - DECREASED APPETITE [None]
  - DIARRHOEA [None]
  - FATIGUE [None]
  - JOINT SWELLING [None]
  - MENISCUS LESION [None]
  - MYALGIA [None]
  - OEDEMA PERIPHERAL [None]
  - PRURITUS [None]
  - RASH [None]
  - STAPHYLOCOCCAL INFECTION [None]
  - WEIGHT DECREASED [None]
  - WHITE BLOOD CELL COUNT DECREASED [None]
